FAERS Safety Report 9103834 (Version 1)
Quarter: 2013Q1

REPORT INFORMATION
  Report Type: Spontaneous
  Country: NL (occurrence: NL)
  Receive Date: 20130219
  Receipt Date: 20130219
  Transmission Date: 20140127
  Serious: Yes (Other)
  Sender: FDA-Public Use
  Company Number: NL-WATSON-2013-02316

PATIENT
  Age: 57 Year
  Sex: Female

DRUGS (3)
  1. CLINDAMYCIN HYDROCHLORIDE (UNKNOWN) [Suspect]
     Indication: OSTEOMYELITIS
     Dosage: 300 MG, UNKNOWN
     Route: 042
  2. CLINDAMYCIN HYDROCHLORIDE (UNKNOWN) [Suspect]
     Dosage: 600 MG, UNKNOWN
     Route: 048
  3. SALBUTAMOL [Concomitant]
     Indication: PRODUCT USED FOR UNKNOWN INDICATION
     Dosage: UNK, UNKNOWN
     Route: 065

REACTIONS (2)
  - Ageusia [Recovered/Resolved]
  - Dysgeusia [Recovered/Resolved]
